FAERS Safety Report 9163557 (Version 1)
Quarter: 2013Q1

REPORT INFORMATION
  Report Type: Spontaneous
  Country: GR (occurrence: None)
  Receive Date: 20130221
  Receipt Date: 20130221
  Transmission Date: 20140127
  Serious: Yes (Hospitalization)
  Sender: FDA-Public Use
  Company Number: SYM-2013-00516

PATIENT
  Age: 55 Year
  Sex: Male

DRUGS (1)
  1. FLAGYL [Suspect]
     Indication: TOOTH ABSCESS
     Dosage: 1 DOSAGE FORMS, UNKNOWN, UNKNOWN?

REACTIONS (1)
  - Hypersensitivity [None]
